FAERS Safety Report 6447727-8 (Version None)
Quarter: 2009Q4

REPORT INFORMATION
  Report Type: 
  Country: None (occurrence: None)
  Receive Date: 20091120
  Receipt Date: 20091111
  Transmission Date: 20100525
  Serious: Yes (Other)
  Sender: FDA-Public Use
  Company Number: US-BIOGENIDEC-2008BI032328

PATIENT
  Age: 33 Year
  Sex: Female

DRUGS (3)
  1. AVONEX [Suspect]
     Indication: MULTIPLE SCLEROSIS
     Route: 030
     Dates: start: 20041214, end: 20070120
  2. AVONEX [Suspect]
     Route: 030
     Dates: start: 20090530
  3. SYNTHROID [Concomitant]

REACTIONS (1)
  - ABORTION MISSED [None]
